FAERS Safety Report 17919195 (Version 1)
Quarter: 2020Q2

REPORT INFORMATION
  Report Type: Report from Study
  Country: CO (occurrence: CO)
  Receive Date: 20200619
  Receipt Date: 20200619
  Transmission Date: 20200714
  Serious: Yes (Hospitalization, Other)
  Sender: FDA-Public Use
  Company Number: CO-BRISTOL-MYERS SQUIBB COMPANY-BMS-2019-000936

PATIENT
  Age: 61 Year
  Sex: Female

DRUGS (1)
  1. ABATACEPT [Suspect]
     Active Substance: ABATACEPT
     Indication: RHEUMATOID ARTHRITIS
     Dosage: 500 MILLIGRAM, Q4WK
     Route: 042
     Dates: start: 20160313, end: 20200528

REACTIONS (4)
  - Impaired healing [Unknown]
  - Stitch abscess [Recovering/Resolving]
  - Fall [Unknown]
  - Hip fracture [Recovering/Resolving]

NARRATIVE: CASE EVENT DATE: 20181231
